FAERS Safety Report 16143521 (Version 1)
Quarter: 2019Q2

REPORT INFORMATION
  Report Type: Spontaneous
  Country: FR (occurrence: FR)
  Receive Date: 20190401
  Receipt Date: 20190401
  Transmission Date: 20190711
  Serious: Yes (Hospitalization)
  Sender: FDA-Public Use
  Company Number: FR-TEVA-2019-FR-1031637

PATIENT
  Age: 53 Year
  Sex: Male

DRUGS (2)
  1. AMOXICILLIN. [Suspect]
     Active Substance: AMOXICILLIN
     Indication: BRONCHITIS
     Route: 048
     Dates: start: 20190218, end: 20190221
  2. PARACETAMOL [Suspect]
     Active Substance: ACETAMINOPHEN
     Indication: BRONCHITIS
     Route: 048
     Dates: start: 20190218, end: 20190221

REACTIONS (1)
  - Fixed eruption [Recovering/Resolving]

NARRATIVE: CASE EVENT DATE: 20190219
